FAERS Safety Report 5906701-8 (Version None)
Quarter: 2008Q3

REPORT INFORMATION
  Report Type: 
  Country: None (occurrence: None)
  Receive Date: 20080930
  Receipt Date: 20080805
  Transmission Date: 20090109
  Serious: Yes (Death)
  Sender: FDA-Public Use
  Company Number: 08H-028-0314960-00

PATIENT
  Sex: Female

DRUGS (1)
  1. ATROPINE SULFATE [Suspect]
     Indication: DRUG USE FOR UNKNOWN INDICATION
     Dosage: INTRAVENOUS
     Route: 042
     Dates: start: 20080805, end: 20080805

REACTIONS (1)
  - DEVICE BREAKAGE [None]
